FAERS Safety Report 25841397 (Version 1)
Quarter: 2025Q3

REPORT INFORMATION
  Report Type: Spontaneous
  Country: US (occurrence: US)
  Receive Date: 20250924
  Receipt Date: 20250924
  Transmission Date: 20251021
  Serious: Yes (Death, Hospitalization, Other)
  Sender: GRANULES PHARMACEUTICALS INC
  Company Number: US-GRANULES-US-2025GRALIT00529

PATIENT
  Age: 29 Year
  Sex: Male

DRUGS (6)
  1. COLCHICINE [Suspect]
     Active Substance: COLCHICINE
     Indication: Product used for unknown indication
     Route: 048
  2. COLCHICINE [Suspect]
     Active Substance: COLCHICINE
     Route: 048
  3. METHAMPHETAMINE [Suspect]
     Active Substance: METHAMPHETAMINE
     Indication: Product used for unknown indication
     Route: 048
  4. COCAINE [Suspect]
     Active Substance: COCAINE
     Indication: Product used for unknown indication
     Route: 048
  5. CARVEDILOL [Suspect]
     Active Substance: CARVEDILOL
     Indication: Product used for unknown indication
     Route: 048
  6. CARVEDILOL [Suspect]
     Active Substance: CARVEDILOL
     Route: 048

REACTIONS (20)
  - Cardiogenic shock [Fatal]
  - Multiple organ dysfunction syndrome [Fatal]
  - Electrocardiogram QRS complex prolonged [Fatal]
  - Electrocardiogram QT prolonged [Fatal]
  - Cardiac dysfunction [Fatal]
  - Tachycardia [Fatal]
  - Leukocytosis [Fatal]
  - Chest pain [Fatal]
  - Hypotension [Fatal]
  - Somnolence [Fatal]
  - Nausea [Fatal]
  - Vomiting [Fatal]
  - Abdominal pain [Fatal]
  - Diarrhoea [Fatal]
  - Dizziness [Fatal]
  - Lethargy [Fatal]
  - Cyanosis [Fatal]
  - Pallor [Fatal]
  - Mucosal dryness [Fatal]
  - Overdose [Unknown]
